FAERS Safety Report 23141332 (Version 1)
Quarter: 2023Q4

REPORT INFORMATION
  Report Type: Spontaneous
  Country: SE (occurrence: SE)
  Receive Date: 20231103
  Receipt Date: 20231103
  Transmission Date: 20240109
  Serious: Yes (Other)
  Sender: FDA-Public Use
  Company Number: SE-EPICPHARMA-SE-2023EPCLIT01546

PATIENT
  Age: 69 Year
  Sex: Male

DRUGS (2)
  1. DICLOFENAC SODIUM [Suspect]
     Active Substance: DICLOFENAC\DICLOFENAC SODIUM
     Indication: Muscle strain
     Dosage: AT 10 PM THE EVENING BEFORE OGTT
     Route: 065
  2. ASPIRIN [Suspect]
     Active Substance: ASPIRIN
     Indication: Muscle strain
     Dosage: IN THE EARLY MORNING
     Route: 065

REACTIONS (2)
  - Hypoglycaemia [Recovered/Resolved]
  - Product use in unapproved indication [Unknown]
